FAERS Safety Report 5032316-2 (Version None)
Quarter: 2006Q2

REPORT INFORMATION
  Report Type: 
  Country: None (occurrence: None)
  Receive Date: 20060620
  Receipt Date: 20060620
  Transmission Date: 20061013
  Serious: No
  Sender: FDA-Public Use
  Company Number: None

PATIENT
  Age: 64 Year
  Sex: Male
  Weight: 115.2136 kg

DRUGS (2)
  1. LEVAQUIN [Suspect]
     Indication: PROSTATE INFECTION
     Dosage: 1 DAILY
     Dates: start: 20060523, end: 20060616
  2. AMITRIPTYLINE HCL [Suspect]
     Indication: PROSTATE INFECTION
     Dosage: 25 MG 3 DAILY
     Dates: start: 20060525, end: 20060603

REACTIONS (14)
  - ARTHRALGIA [None]
  - DIZZINESS [None]
  - FATIGUE [None]
  - FEELING ABNORMAL [None]
  - FURUNCLE [None]
  - HEADACHE [None]
  - HYPOAESTHESIA [None]
  - LETHARGY [None]
  - MEMORY IMPAIRMENT [None]
  - MUSCLE FATIGUE [None]
  - MYALGIA [None]
  - PAIN IN EXTREMITY [None]
  - PARAESTHESIA [None]
  - SOMNOLENCE [None]
